FAERS Safety Report 17812341 (Version 1)
Quarter: 2020Q2

REPORT INFORMATION
  Report Type: Spontaneous
  Country: None (occurrence: US)
  Receive Date: 20200521
  Receipt Date: 20200521
  Transmission Date: 20200714
  Serious: Yes (Life-Threatening)
  Sender: FDA-Public Use
  Company Number: US-I-HEALTH, INC.-2084057

PATIENT
  Age: 51 Year
  Sex: Female

DRUGS (1)
  1. AZO URINARY PAIN RELIEF MAXIMUM STRENGTH [Suspect]
     Active Substance: PHENAZOPYRIDINE HYDROCHLORIDE
     Indication: URINARY TRACT PAIN
     Route: 048
     Dates: start: 20200502, end: 20200502

REACTIONS (1)
  - Hypersensitivity [Recovering/Resolving]

NARRATIVE: CASE EVENT DATE: 20200502
